FAERS Safety Report 7806713-3 (Version None)
Quarter: 2011Q4

REPORT INFORMATION
  Report Type: 
  Country: None (occurrence: None)
  Receive Date: 20111011
  Receipt Date: 20110930
  Transmission Date: 20120403
  Serious: Yes (Hospitalization)
  Sender: FDA-Public Use
  Company Number: US-JNJFOC-20111001051

PATIENT
  Sex: Female
  Weight: 90.72 kg

DRUGS (1)
  1. REMICADE [Suspect]
     Indication: ARTHRITIS
     Route: 042
     Dates: start: 20101101

REACTIONS (4)
  - CORONARY ARTERY OCCLUSION [None]
  - OEDEMA PERIPHERAL [None]
  - DYSPNOEA [None]
  - RECTAL HAEMORRHAGE [None]
